FAERS Safety Report 14544410 (Version 8)
Quarter: 2018Q3

REPORT INFORMATION
  Report Type: Report from Study
  Country: DE (occurrence: DE)
  Receive Date: 20180217
  Receipt Date: 20180822
  Transmission Date: 20181010
  Serious: Yes (Hospitalization, Other)
  Sender: FDA-Public Use
  Company Number: DE-BRISTOL-MYERS SQUIBB COMPANY-BMS-2018-012567

PATIENT
  Age: 76 Year
  Sex: Female
  Weight: 58 kg

DRUGS (12)
  1. TORASEMID [Concomitant]
     Active Substance: TORSEMIDE
     Indication: HYPERTENSION
     Dosage: 10 MG, QD
     Route: 048
     Dates: start: 20170130
  2. METOPROLOL SUCCINATE. [Concomitant]
     Active Substance: METOPROLOL SUCCINATE
     Indication: HYPERTENSION
     Dosage: 47.5 MG, QD
     Route: 048
     Dates: start: 20170516
  3. L?THYROXIN                         /00068001/ [Concomitant]
     Active Substance: LEVOTHYROXINE
     Indication: HYPOTHYROIDISM
     Dosage: 75 MEQ, QD
     Route: 048
     Dates: start: 2017
  4. INSULIN [Concomitant]
     Active Substance: INSULIN NOS
     Indication: DIABETES MELLITUS
     Dosage: 12 IU, QD
     Route: 048
     Dates: start: 20171025
  5. ASPIRIN. [Concomitant]
     Active Substance: ASPIRIN
     Indication: CARDIAC FAILURE
     Dosage: 100 MG, UNK
     Route: 048
     Dates: start: 20170130
  6. NIVOLUMAB [Suspect]
     Active Substance: NIVOLUMAB
     Indication: PRODUCT USED FOR UNKNOWN INDICATION
     Dosage: 1 DF, Q2WK
     Route: 065
     Dates: start: 20171123, end: 20180112
  7. FERRO?SANOL DUODENAL [Concomitant]
     Active Substance: FERROUS GLYCINE SULFATE
     Indication: ANAEMIA
     Dosage: 200 MG, QD
     Route: 048
     Dates: start: 20161228
  8. COLECALCIFEROL [Concomitant]
     Active Substance: CHOLECALCIFEROL
     Indication: PRODUCT USED FOR UNKNOWN INDICATION
     Dosage: 1000 MG, UNK
     Route: 048
     Dates: start: 20170303, end: 20171201
  9. CLOPIDOGREL [Concomitant]
     Active Substance: CLOPIDOGREL BISULFATE
     Indication: CARDIAC FAILURE
     Dosage: 75 MG, QD
     Route: 048
     Dates: start: 20170130
  10. NEPHROTRANS [Concomitant]
     Active Substance: SODIUM BICARBONATE
     Indication: DIABETES MELLITUS
     Dosage: 10000 MG, UNK
     Route: 048
     Dates: start: 20170113
  11. VIGANTOLETTEN [Concomitant]
     Active Substance: CHOLECALCIFEROL
     Indication: ANAEMIA
     Dosage: 1000 IU, UNK
     Route: 048
     Dates: start: 20161228
  12. SIMVASTATIN. [Concomitant]
     Active Substance: SIMVASTATIN
     Indication: CARDIAC FAILURE
     Dosage: 20 MG, QD
     Route: 065
     Dates: start: 20170130

REACTIONS (3)
  - Gait disturbance [Recovered/Resolved]
  - Autoimmune hepatitis [Recovering/Resolving]
  - Blood calcium increased [Recovered/Resolved]

NARRATIVE: CASE EVENT DATE: 20171201
